FAERS Safety Report 17447082 (Version 1)
Quarter: 2020Q1

REPORT INFORMATION
  Report Type: Spontaneous
  Country: FR (occurrence: FR)
  Receive Date: 20200221
  Receipt Date: 20200221
  Transmission Date: 20200409
  Serious: Yes (Other)
  Sender: FDA-Public Use
  Company Number: FR-ALK-ABELLO A/S-2080773

PATIENT
  Age: 12 Year
  Sex: Male

DRUGS (4)
  1. OSIRIS (F615) BETULA PENDULA ROTH [Concomitant]
  2. GRASTEK [Suspect]
     Active Substance: PHLEUM PRATENSE POLLEN
     Indication: IMMUNE TOLERANCE INDUCTION
     Route: 060
  3. VENTOLINE [Concomitant]
     Active Substance: ALBUTEROL
  4. AERIUS [Concomitant]

REACTIONS (4)
  - Salivary hypersecretion [Recovered/Resolved]
  - Dysphonia [Recovered/Resolved]
  - Chest pain [Recovered/Resolved]
  - Asthmatic crisis [Recovered/Resolved]
